FAERS Safety Report 7970707-8 (Version None)
Quarter: 2011Q4

REPORT INFORMATION
  Report Type: 
  Country: None (occurrence: None)
  Receive Date: 20111212
  Receipt Date: 20111212
  Transmission Date: 20120403
  Serious: Yes (Other)
  Sender: FDA-Public Use
  Company Number: CO-BAYER-2011-118624

PATIENT
  Sex: Female

DRUGS (2)
  1. INSULIN [Concomitant]
     Dosage: UNK
  2. NEXAVAR [Suspect]
     Indication: HEPATIC NEOPLASM MALIGNANT
     Dosage: UNK
     Dates: start: 20110801

REACTIONS (1)
  - HYPOGLYCAEMIA [None]
